FAERS Safety Report 5323036-5 (Version None)
Quarter: 2007Q2

REPORT INFORMATION
  Report Type: 
  Country: None (occurrence: None)
  Receive Date: 20070220
  Receipt Date: 20070110
  Transmission Date: 20071010
  Serious: No
  Sender: FDA-Public Use
  Company Number: WAES 0701USA01309

PATIENT
  Sex: Female

DRUGS (6)
  1. JANUVIA [Suspect]
     Indication: DIABETES MELLITUS NON-INSULIN-DEPENDENT
     Dosage: 100 MG/DAILY/PO
     Route: 048
     Dates: start: 20061201
  2. CALAN [Concomitant]
  3. COZAAR [Concomitant]
  4. LANTUS [Concomitant]
  5. LIPITOR [Concomitant]
  6. LOPRESSOR [Concomitant]

REACTIONS (3)
  - FEELING JITTERY [None]
  - MUSCULAR WEAKNESS [None]
  - TREMOR [None]
